FAERS Safety Report 24242757 (Version 3)
Quarter: 2024Q3

REPORT INFORMATION
  Report Type: Spontaneous
  Country: US (occurrence: US)
  Receive Date: 20240823
  Receipt Date: 20240927
  Transmission Date: 20241017
  Serious: No
  Sender: PFIZER
  Company Number: US-PFIZER INC-202400239532

PATIENT
  Age: 13 Year
  Sex: Female
  Weight: 33.56 kg

DRUGS (1)
  1. GENOTROPIN [Suspect]
     Active Substance: SOMATROPIN
     Dosage: 1.4 MG, DAILY (PEN NEEDLE (SIZE): 31 G X 5 MM)
     Route: 058
     Dates: start: 202408

REACTIONS (6)
  - Incorrect dose administered by device [Unknown]
  - Device delivery system issue [Unknown]
  - Accidental exposure to product [Unknown]
  - Exposure via skin contact [Unknown]
  - Device leakage [Unknown]
  - Device use error [Unknown]
